FAERS Safety Report 6272169-8 (Version None)
Quarter: 2009Q3

REPORT INFORMATION
  Report Type: 
  Country: None (occurrence: None)
  Receive Date: 20090717
  Receipt Date: 20090715
  Transmission Date: 20100115
  Serious: Yes (Hospitalization)
  Sender: FDA-Public Use
  Company Number: FR-BRISTOL-MYERS SQUIBB COMPANY-14702146

PATIENT
  Age: 89 Year
  Sex: Female

DRUGS (4)
  1. APROVEL TABS 300 MG [Suspect]
     Dates: end: 20090621
  2. FUROSEMIDE [Suspect]
     Dates: end: 20090621
  3. ASPEGIC 1000 [Suspect]
     Dates: end: 20090621
  4. STRESAM [Suspect]
     Dates: end: 20090621

REACTIONS (1)
  - THROMBOCYTOPENIC PURPURA [None]
